FAERS Safety Report 9970469 (Version 1)
Quarter: 2014Q1

REPORT INFORMATION
  Report Type: Report from Study
  Country: US (occurrence: US)
  Receive Date: 20140306
  Receipt Date: 20140306
  Transmission Date: 20141002
  Serious: No
  Sender: FDA-Public Use
  Company Number: US-ABBVIE-13P-163-1148965-00

PATIENT
  Sex: Female

DRUGS (7)
  1. HUMIRA [Suspect]
     Indication: RHEUMATOID ARTHRITIS
  2. IMITREX [Concomitant]
     Indication: MIGRAINE
     Dosage: 1-2 PILLS AS NEEDED
  3. SYNTHROID [Concomitant]
     Indication: HORMONE REPLACEMENT THERAPY
     Dosage: 0.75 MCG EVERYDAY
  4. ZEGRAN [Concomitant]
     Indication: GASTRIC DISORDER
     Dosage: 40/11100 MG
  5. ATENOLOL [Concomitant]
     Indication: BLOOD PRESSURE
     Dosage: 50 MG DAILY
  6. SOLIC ACID [Concomitant]
     Indication: RHEUMATOID ARTHRITIS
  7. METHOTREXATE [Concomitant]
     Indication: MIGRAINE

REACTIONS (1)
  - Migraine [Recovered/Resolved]
